FAERS Safety Report 24434355 (Version 4)
Quarter: 2025Q3

REPORT INFORMATION
  Report Type: Spontaneous
  Country: US (occurrence: US)
  Receive Date: 20241014
  Receipt Date: 20250922
  Transmission Date: 20251021
  Serious: Yes (Disabling, Other)
  Sender: PFIZER
  Company Number: US-PFIZER INC-202400274991

PATIENT
  Age: 57 Year
  Sex: Female
  Weight: 63.492 kg

DRUGS (8)
  1. TUKYSA [Suspect]
     Active Substance: TUCATINIB
     Indication: Breast cancer metastatic
     Route: 048
     Dates: start: 201501
  2. TUKYSA [Suspect]
     Active Substance: TUCATINIB
     Route: 048
     Dates: start: 20150608
  3. TUKYSA [Suspect]
     Active Substance: TUCATINIB
     Route: 048
     Dates: start: 20150817
  4. TUKYSA [Suspect]
     Active Substance: TUCATINIB
     Dosage: 200MG/TWICE A DAY
  5. CAPECITABINE [Suspect]
     Active Substance: CAPECITABINE
     Route: 048
     Dates: start: 201501
  6. CAPECITABINE [Suspect]
     Active Substance: CAPECITABINE
     Route: 048
  7. CAPECITABINE [Suspect]
     Active Substance: CAPECITABINE
  8. CAPECITABINE [Suspect]
     Active Substance: CAPECITABINE
     Dates: start: 20151021

REACTIONS (14)
  - Lumbar vertebral fracture [Unknown]
  - Fatigue [Not Recovered/Not Resolved]
  - Cancer pain [Unknown]
  - Nausea [Recovered/Resolved]
  - Decreased appetite [Recovered/Resolved]
  - Alopecia [Not Recovered/Not Resolved]
  - Mucosal inflammation [Recovered/Resolved with Sequelae]
  - Skin toxicity [Recovered/Resolved with Sequelae]
  - Blister [Recovered/Resolved with Sequelae]
  - Nausea [Unknown]
  - Weight decreased [Recovered/Resolved]
  - Nerve injury [Unknown]
  - Arthralgia [Recovering/Resolving]
  - Pain [Not Recovered/Not Resolved]

NARRATIVE: CASE EVENT DATE: 20150608
